FAERS Safety Report 7803163-0 (Version None)
Quarter: 2011Q4

REPORT INFORMATION
  Report Type: 
  Country: None (occurrence: None)
  Receive Date: 20111007
  Receipt Date: 20101022
  Transmission Date: 20120403
  Serious: No
  Sender: FDA-Public Use
  Company Number: US-ABBOTT-10P-163-0680302-00

PATIENT
  Sex: Male
  Weight: 136.2 kg

DRUGS (3)
  1. TRUVADA [Concomitant]
     Indication: HIV INFECTION
  2. KALETRA [Suspect]
     Indication: HIV INFECTION
     Route: 048
     Dates: end: 20101001
  3. ATENOLOL [Concomitant]
     Indication: HYPERTENSION

REACTIONS (1)
  - BLOOD TRIGLYCERIDES INCREASED [None]
